FAERS Safety Report 4680462-5 (Version None)
Quarter: 2005Q2

REPORT INFORMATION
  Report Type: 
  Country: None (occurrence: None)
  Receive Date: 20050602
  Receipt Date: 20050525
  Transmission Date: 20051028
  Serious: Yes (Death)
  Sender: FDA-Public Use
  Company Number: AU-MERCK-0505USA03303

PATIENT
  Age: 53 Year
  Sex: Female

DRUGS (3)
  1. DECADRON [Suspect]
     Indication: PERIPHERAL T-CELL LYMPHOMA UNSPECIFIED
     Route: 048
  2. DOXORUBICIN [Concomitant]
     Indication: PERIPHERAL T-CELL LYMPHOMA UNSPECIFIED
     Route: 065
  3. CYCLOPHOSPHAMIDE [Concomitant]
     Indication: PERIPHERAL T-CELL LYMPHOMA UNSPECIFIED
     Route: 065

REACTIONS (3)
  - DISSEMINATED INTRAVASCULAR COAGULATION [None]
  - ENTEROCOCCAL INFECTION [None]
  - ENTEROCOCCAL SEPSIS [None]
